FAERS Safety Report 18587201 (Version 1)
Quarter: 2020Q4

REPORT INFORMATION
  Report Type: Spontaneous
  Country: GB (occurrence: GB)
  Receive Date: 20201207
  Receipt Date: 20201207
  Transmission Date: 20210114
  Serious: Yes (Other)
  Sender: FDA-Public Use
  Company Number: GB-TEVA-2020-GB-1854929

PATIENT
  Age: 77 Year
  Sex: Female
  Weight: 80 kg

DRUGS (14)
  1. OMEPRAZOLE. [Concomitant]
     Active Substance: OMEPRAZOLE
     Dosage: UNIT DOSE : 1 DOSAGE FORMS
     Dates: start: 20191211
  2. HUMULIN M3 [Concomitant]
     Active Substance: INSULIN HUMAN
     Dosage: USE AS DIRECTED
     Dates: start: 20191211
  3. FERROUS FUMARATE [Concomitant]
     Active Substance: FERROUS FUMARATE
     Dosage: TAKE ONE EVERY DAY INCREASING TO TWICE DAILY OR...
     Dates: start: 20191211
  4. RAMIPRIL. [Concomitant]
     Active Substance: RAMIPRIL
     Dosage: 1 DOSAGE FORMS DAILY; AT NIGHT
     Dates: start: 20191211
  5. PARACETAMOL [Concomitant]
     Active Substance: ACETAMINOPHEN
     Dosage: UNIT DOSE : 6 DOSAGE FORMS
     Dates: start: 20191211
  6. SIMVASTATIN. [Concomitant]
     Active Substance: SIMVASTATIN
     Dosage: 1 DOSAGE FORMS DAILY; AT NIGHT
     Dates: start: 20191211
  7. SUKKARTO [Concomitant]
     Active Substance: METFORMIN HYDROCHLORIDE
     Dosage: UNIT DOSE : 2 DOSAGE FORMS
     Dates: start: 20200615
  8. LEVOTHYROXINE. [Concomitant]
     Active Substance: LEVOTHYROXINE
     Dosage: UNIT DOSE : 1 DOSAGE FORMS
     Dates: start: 20191211
  9. ZEROBASE [Concomitant]
     Active Substance: MINERAL OIL\PARAFFIN
     Dates: start: 20191211
  10. TRIMETHOPRIM. [Suspect]
     Active Substance: TRIMETHOPRIM
     Dosage: UNIT DOSE : 400 MG
     Route: 048
     Dates: start: 20201104, end: 20201107
  11. FUROSEMIDE. [Concomitant]
     Active Substance: FUROSEMIDE
     Dosage: 1 DOSAGE FORMS DAILY; EACH MORNING
     Dates: start: 20200601
  12. BISOPROLOL [Concomitant]
     Active Substance: BISOPROLOL
     Dosage: UNIT DOSE : 1 DOSAGE FORMS
     Dates: start: 20191211
  13. CHLORPHENAMINE [Concomitant]
     Active Substance: CHLORPHENIRAMINE MALEATE
     Dosage: TAKE ONE EVERY 4-6 HOURS - MAXIMUM 12MG IN 24 HOURS...
     Dates: start: 20201109
  14. FOSFOMYCIN [Concomitant]
     Active Substance: FOSFOMYCIN
     Dosage: USE AS DIRECTED
     Dates: start: 20201109

REACTIONS (3)
  - Lip swelling [Recovering/Resolving]
  - Swollen tongue [Recovering/Resolving]
  - Oral pain [Unknown]

NARRATIVE: CASE EVENT DATE: 202011
